FAERS Safety Report 18412908 (Version 1)
Quarter: 2020Q4

REPORT INFORMATION
  Report Type: Spontaneous
  Country: IT (occurrence: IT)
  Receive Date: 20201022
  Receipt Date: 20201022
  Transmission Date: 20210114
  Serious: Yes (Other)
  Sender: FDA-Public Use
  Company Number: IT-ROCHE-2697084

PATIENT
  Age: 82 Year
  Sex: Female

DRUGS (1)
  1. BEVACIZUMAB. [Suspect]
     Active Substance: BEVACIZUMAB
     Indication: MACULAR DEGENERATION
     Route: 065
     Dates: start: 20200828

REACTIONS (2)
  - Transient ischaemic attack [Recovered/Resolved]
  - Aphasia [Recovered/Resolved]

NARRATIVE: CASE EVENT DATE: 20200831
